FAERS Safety Report 14750430 (Version 7)
Quarter: 2024Q1

REPORT INFORMATION
  Report Type: Report from Study
  Country: DE (occurrence: DE)
  Receive Date: 20180412
  Receipt Date: 20240123
  Transmission Date: 20240409
  Serious: Yes (Other)
  Sender: FDA-Public Use
  Company Number: DE-AMGEN-DEUNI2018048033

PATIENT
  Age: 60 Year
  Sex: Male
  Weight: 70 kg

DRUGS (19)
  1. PANITUMUMAB [Suspect]
     Active Substance: PANITUMUMAB
     Indication: Colorectal cancer metastatic
     Dosage: 424 MILLIGRAM
     Route: 042
     Dates: start: 20180314
  2. IRINOTECAN [Suspect]
     Active Substance: IRINOTECAN
     Indication: Colorectal cancer metastatic
     Dosage: 329 MILLIGRAM
     Route: 065
     Dates: start: 20180314
  3. LEUCOVORIN [Suspect]
     Active Substance: LEUCOVORIN\LEUCOVORIN CALCIUM
     Indication: Colorectal cancer metastatic
     Dosage: 366 MILLIGRAM
     Route: 065
     Dates: start: 20180314
  4. FLUOROURACIL [Suspect]
     Active Substance: FLUOROURACIL
     Indication: Colorectal cancer metastatic
     Dosage: 730 MILLIGRAM
     Route: 040
     Dates: start: 20180314
  5. FLUOROURACIL [Suspect]
     Active Substance: FLUOROURACIL
     Dosage: 1100 MILLIGRAM
     Route: 042
     Dates: start: 20180314
  6. SPIRONOLACTONE [Concomitant]
     Active Substance: SPIRONOLACTONE
     Indication: Prophylaxis
     Dosage: 50 MG, QD
     Route: 048
     Dates: start: 201802
  7. ENOXAPARIN SODIUM [Concomitant]
     Active Substance: ENOXAPARIN SODIUM
     Dosage: 40 MG, QD
     Route: 058
     Dates: start: 201801, end: 20180313
  8. MOVICOL [Concomitant]
     Active Substance: POLYETHYLENE GLYCOL 3350\POTASSIUM CHLORIDE\SODIUM BICARBONATE\SODIUM CHLORIDE
     Indication: Rectal cancer
     Dosage: 1 UNK, AS NECESSARY
     Route: 048
     Dates: start: 201802
  9. ENALAPRIL [Concomitant]
     Active Substance: ENALAPRIL
     Indication: Hypertension
     Dosage: 20 MG, QD
     Route: 048
     Dates: start: 201802
  10. Carmen [Concomitant]
     Indication: Hypertension
     Dosage: 10 MG, QD
     Route: 048
     Dates: start: 201802
  11. L-THYROXIN BETA [Concomitant]
     Indication: Hypothyroidism
     Dosage: 75 MUG/KG, QD
     Route: 048
     Dates: start: 201802
  12. METAMIZOLE [Concomitant]
     Active Substance: METAMIZOLE
     Indication: Gout
     Dosage: 500 MG, QID
     Route: 048
     Dates: start: 201802
  13. MOXONIDIN RATIOPHARM [Concomitant]
     Indication: Hypertension
     Dosage: 0.3 MG, BID
     Route: 048
     Dates: start: 201802
  14. HYDROCHLOROTHIAZIDE\METOPROLOL SUCCINATE [Concomitant]
     Active Substance: HYDROCHLOROTHIAZIDE\METOPROLOL SUCCINATE
     Indication: Hypertension
     Dosage: 47.5 MG, BID
     Route: 048
     Dates: start: 201802
  15. PANTOPRAZOLE SODIUM [Concomitant]
     Active Substance: PANTOPRAZOLE SODIUM
     Indication: Prophylaxis
     Dosage: 40 MG, QD
     Route: 048
     Dates: start: 201802
  16. TORSEMIDE [Concomitant]
     Active Substance: TORSEMIDE
     Indication: Hypertension
     Dosage: 10 MG, QD
     Route: 048
     Dates: start: 201802
  17. PYRIDOXINE HYDROCHLORIDE\THIAMINE HYDROCHLORIDE [Concomitant]
     Active Substance: PYRIDOXINE HYDROCHLORIDE\THIAMINE HYDROCHLORIDE
     Indication: Prophylaxis
     Dosage: 999 UNK, QD
     Route: 048
     Dates: start: 201802
  18. NITRENDIPINE [Concomitant]
     Active Substance: NITRENDIPINE
     Indication: Hypertension
     Dosage: 5 MG, AS NECESSARY
     Route: 048
     Dates: start: 201802
  19. DOXYCYCLIN-RATIOPHARM [Concomitant]
     Indication: Drug eruption
     Dosage: 100-200 MG, BID
     Route: 048
     Dates: start: 20180312

REACTIONS (2)
  - Leukopenia [Recovered/Resolved]
  - Drug eruption [Recovering/Resolving]

NARRATIVE: CASE EVENT DATE: 20180327
